FAERS Safety Report 10401934 (Version 1)
Quarter: 2014Q3

REPORT INFORMATION
  Report Type: Spontaneous
  Country: RU (occurrence: RU)
  Receive Date: 20140822
  Receipt Date: 20140822
  Transmission Date: 20150326
  Serious: Yes (Death)
  Sender: FDA-Public Use
  Company Number: RU-ASTRAZENECA-2014SE62547

PATIENT
  Age: 27650 Day
  Sex: Male
  Weight: 75 kg

DRUGS (6)
  1. THROMBO ASS (ACETYLSALICYLIC ACID) [Concomitant]
     Active Substance: ASPIRIN
     Route: 048
     Dates: start: 20140818
  2. ULTOP (OMEPRAZOLE) [Concomitant]
     Route: 042
     Dates: start: 20140818
  3. BRILINTA [Suspect]
     Active Substance: TICAGRELOR
     Indication: ACUTE CORONARY SYNDROME
     Route: 048
     Dates: start: 20140818
  4. CLEXANE (ENOXAPARIN) [Concomitant]
     Route: 058
     Dates: start: 20140818
  5. CERUCAL (METOCLOPRAMIDE) [Concomitant]
     Route: 030
     Dates: start: 20140818
  6. ATORVASTATIN [Concomitant]
     Active Substance: ATORVASTATIN
     Route: 048
     Dates: start: 20140818

REACTIONS (4)
  - Cardiovascular insufficiency [Fatal]
  - Pulmonary oedema [Fatal]
  - Hydrothorax [Fatal]
  - Cardiac arrest [Fatal]

NARRATIVE: CASE EVENT DATE: 20140818
